FAERS Safety Report 7163335-8 (Version None)
Quarter: 2010Q4

REPORT INFORMATION
  Report Type: 
  Country: None (occurrence: None)
  Receive Date: 20101215
  Receipt Date: 20100330
  Transmission Date: 20110411
  Serious: Yes (Other)
  Sender: FDA-Public Use
  Company Number: AU-PFIZER INC-2010030569

PATIENT
  Age: 52 Year
  Sex: Female
  Weight: 84 kg

DRUGS (2)
  1. LYRICA [Suspect]
     Indication: NEURALGIA
     Dosage: 150 MG, 2X/DAY
     Route: 048
     Dates: start: 20100304, end: 20100304
  2. ATACAND [Concomitant]
     Indication: BLOOD PRESSURE
     Dosage: 1 TABLET IN THE MORNING
     Route: 048

REACTIONS (4)
  - DIZZINESS [None]
  - HALLUCINATION [None]
  - SEDATION [None]
  - SOMNOLENCE [None]
